FAERS Safety Report 7617472-1 (Version None)
Quarter: 2011Q3

REPORT INFORMATION
  Report Type: 
  Country: None (occurrence: None)
  Receive Date: 20110718
  Receipt Date: 20110713
  Transmission Date: 20111222
  Serious: No
  Sender: FDA-Public Use
  Company Number: US-PFIZER INC-2011158448

PATIENT
  Sex: Male
  Weight: 15.873 kg

DRUGS (1)
  1. CHILDREN'S ADVIL [Suspect]
     Indication: PAIN
     Dosage: ONE TEASPOON, ONE TIME
     Route: 048
     Dates: start: 20110520, end: 20110520

REACTIONS (1)
  - URTICARIA [None]
